FAERS Safety Report 9993218 (Version 1)
Quarter: 2014Q1

REPORT INFORMATION
  Report Type: Report from Study
  Country: US (occurrence: US)
  Receive Date: 20140310
  Receipt Date: 20140310
  Transmission Date: 20141002
  Serious: No
  Sender: FDA-Public Use
  Company Number: US-ABBVIE-13P-163-1184441-00

PATIENT
  Age: 44 Year
  Sex: Female

DRUGS (2)
  1. LUPRON DEPOT [Suspect]
     Indication: PREMENSTRUAL SYNDROME
     Dates: start: 20131219
  2. LUPRON DEPOT [Suspect]
     Indication: PREMENSTRUAL SYNDROME
     Dates: start: 20130909, end: 20131219

REACTIONS (2)
  - Hypomenorrhoea [Not Recovered/Not Resolved]
  - Menorrhagia [Not Recovered/Not Resolved]
